FAERS Safety Report 10071089 (Version 2)
Quarter: 2014Q2

REPORT INFORMATION
  Report Type: Report from Study
  Country: IT (occurrence: IT)
  Receive Date: 20140410
  Receipt Date: 20140410
  Transmission Date: 20141212
  Serious: Yes (Other)
  Sender: FDA-Public Use
  Company Number: IT-GILEAD-2014-0096562

PATIENT
  Age: 20 Year
  Sex: Male
  Weight: 76 kg

DRUGS (4)
  1. BLINDED PLACEBO [Suspect]
     Indication: HYPERTROPHIC CARDIOMYOPATHY
     Dosage: UNK
     Route: 048
     Dates: start: 20140214
  2. BLINDED RANOLAZINE [Suspect]
     Indication: HYPERTROPHIC CARDIOMYOPATHY
     Dosage: UNK
     Route: 048
     Dates: start: 20140214
  3. CORGARD [Concomitant]
     Indication: HYPERTROPHIC CARDIOMYOPATHY
     Dosage: 40 MG, QD
     Route: 048
     Dates: start: 2009, end: 20140112
  4. CORGARD [Concomitant]
     Dosage: 80 MG, QD
     Route: 048
     Dates: start: 20140113

REACTIONS (2)
  - Atrial fibrillation [Recovered/Resolved]
  - Presyncope [Recovered/Resolved]
